FAERS Safety Report 7914263 (Version 2)
Quarter: 2013Q4

REPORT INFORMATION
  Report Type: Spontaneous
  Country: US (occurrence: US)
  Receive Date: 20110426
  Receipt Date: 20131126
  Transmission Date: 20140711
  Serious: Yes (Other)
  Sender: FDA-Public Use
  Company Number: US-RANBAXY-2011US-43764

PATIENT
  Age: 71 Year
  Sex: Male

DRUGS (6)
  1. FENOFIBRATE [Suspect]
     Indication: PRODUCT USED FOR UNKNOWN INDICATION
     Dosage: 200 MG, DAILY
     Route: 065
     Dates: start: 20010606, end: 20020904
  2. FENOFIBRATE [Interacting]
     Indication: PRODUCT USED FOR UNKNOWN INDICATION
     Dosage: 160 MG, DAILY
     Route: 065
     Dates: start: 20061110, end: 20090324
  3. ROSIGLITAZONE [Interacting]
     Indication: PRODUCT USED FOR UNKNOWN INDICATION
     Dosage: 4 MG, DAILY
     Route: 065
     Dates: start: 20010927
  4. ROSIGLITAZONE [Interacting]
     Indication: PRODUCT USED FOR UNKNOWN INDICATION
     Dosage: 4 MG, BID
     Route: 065
     Dates: end: 20061208
  5. SIMVASTATIN [Concomitant]
     Indication: PRODUCT USED FOR UNKNOWN INDICATION
     Dosage: 5 MG; DAILY AT BED TIME
     Route: 065
  6. PIOGLITAZONE [Concomitant]
     Indication: PRODUCT USED FOR UNKNOWN INDICATION
     Dosage: 15 MG, DAILY
     Route: 065
     Dates: start: 20071002, end: 20080206

REACTIONS (2)
  - Drug interaction [Recovered/Resolved]
  - High density lipoprotein decreased [Recovered/Resolved]
